FAERS Safety Report 5147274-X (Version None)
Quarter: 2006Q4

REPORT INFORMATION
  Report Type: 
  Country: None (occurrence: None)
  Receive Date: 20061103
  Receipt Date: 20061020
  Transmission Date: 20070319
  Serious: Yes (Hospitalization)
  Sender: FDA-Public Use
  Company Number: 2006081950

PATIENT
  Age: 63 Year
  Sex: Male

DRUGS (2)
  1. BEXTRA [Suspect]
     Dates: start: 20030101, end: 20030501
  2. VIOXX [Suspect]
     Dosage: (50 MG), ORAL
     Route: 048
     Dates: start: 20020201

REACTIONS (10)
  - ASTHENIA [None]
  - CEREBRAL ATROPHY [None]
  - CLUMSINESS [None]
  - DISORIENTATION [None]
  - DIZZINESS [None]
  - GAIT DISTURBANCE [None]
  - HYPOAESTHESIA [None]
  - HYPOAESTHESIA FACIAL [None]
  - SPEECH DISORDER [None]
  - TRANSIENT ISCHAEMIC ATTACK [None]
